FAERS Safety Report 13895974 (Version 1)
Quarter: 2017Q3

REPORT INFORMATION
  Report Type: Spontaneous
  Country: VN (occurrence: VN)
  Receive Date: 20170823
  Receipt Date: 20170823
  Transmission Date: 20171127
  Serious: Yes (Hospitalization, Other)
  Sender: FDA-Public Use
  Company Number: VN-ASTRAZENECA-2017SE85286

PATIENT
  Age: 17873 Day
  Sex: Male
  Weight: 67 kg

DRUGS (7)
  1. JANUMET [Concomitant]
     Active Substance: METFORMIN HYDROCHLORIDE\SITAGLIPTIN PHOSPHATE
     Dosage: 50/1000 MG, 1 DF TWO TIMES A DAY
     Route: 048
     Dates: start: 20161223, end: 20170207
  2. CRESTOR [Concomitant]
     Active Substance: ROSUVASTATIN CALCIUM
     Route: 048
     Dates: start: 20161223
  3. FORXIGA [Suspect]
     Active Substance: DAPAGLIFLOZIN
     Indication: TYPE 2 DIABETES MELLITUS
     Route: 048
  4. DIAMICRON MR [Concomitant]
     Active Substance: GLICLAZIDE
     Dosage: 30.0MG UNKNOWN
     Route: 048
     Dates: start: 20161223, end: 20170727
  5. DUOPLAVIN [Concomitant]
     Active Substance: ASPIRIN\CLOPIDOGREL
     Dosage: 75/100 MG, 1 DF EVERY DAY
     Route: 048
     Dates: start: 20170207
  6. FORXIGA [Suspect]
     Active Substance: DAPAGLIFLOZIN
     Indication: TYPE 2 DIABETES MELLITUS
     Route: 048
     Dates: start: 20161223, end: 20170729
  7. GLUCOPHAGE XR [Concomitant]
     Active Substance: METFORMIN HYDROCHLORIDE
     Route: 048
     Dates: start: 20170207, end: 20170727

REACTIONS (7)
  - Fatigue [Recovered/Resolved]
  - Dizziness [Recovered/Resolved]
  - Pollakiuria [Recovered/Resolved]
  - Hypoglycaemia [Unknown]
  - Fall [Recovered/Resolved]
  - Dry mouth [Recovered/Resolved]
  - Heart rate increased [Recovered/Resolved]

NARRATIVE: CASE EVENT DATE: 20170115
